FAERS Safety Report 7240799-2 (Version None)
Quarter: 2011Q1

REPORT INFORMATION
  Report Type: 
  Country: None (occurrence: None)
  Receive Date: 20110120
  Receipt Date: 20110120
  Transmission Date: 20110831
  Serious: No
  Sender: FDA-Public Use
  Company Number: None

PATIENT
  Sex: Male
  Weight: 125.6464 kg

DRUGS (1)
  1. COLCRYS [Suspect]
     Indication: GOUT
     Dosage: 0.6MG. TBLT 1 EVERY 1/2 HR - 20 TBLTS TOTAL (16 PILLS IN 8 HRS)
     Dates: start: 20101222

REACTIONS (4)
  - APHAGIA [None]
  - VOMITING [None]
  - OLIGODIPSIA [None]
  - DIARRHOEA [None]
